FAERS Safety Report 11318475 (Version 2)
Quarter: 2016Q3

REPORT INFORMATION
  Report Type: Other
  Country: US (occurrence: US)
  Receive Date: 20150729
  Receipt Date: 20160801
  Transmission Date: 20161109
  Serious: No
  Sender: FDA-Public Use
  Company Number: US-LUPIN PHARMACEUTICALS INC.-2015-01596

PATIENT
  Age: 66 Year
  Sex: Female
  Weight: 68.1 kg

DRUGS (5)
  1. LEVETIRACETAM TABLETS USP 250MG [Suspect]
     Active Substance: LEVETIRACETAM
     Indication: SEIZURE
     Dosage: 1 TABLET IN MORNING AND 3 TABLETS IN EVENING
     Route: 048
     Dates: start: 2015
  2. LEVETIRACETAM TABLETS USP 500MG [Suspect]
     Active Substance: LEVETIRACETAM
     Dosage: ONE TABLET IN THE MORNING AND TWO TABLETS IN THE EVENING
     Dates: start: 201503, end: 2015
  3. KEPPRA [Concomitant]
     Active Substance: LEVETIRACETAM
     Indication: SEIZURE
     Route: 042
     Dates: start: 20150116
  4. LEVETIRACETAM TABLETS USP 500MG [Suspect]
     Active Substance: LEVETIRACETAM
     Indication: SEIZURE
     Dosage: ONE TABLET IN THE MORNING AND TWO TABLETS IN THE EVENING
     Dates: start: 20150118, end: 201502
  5. SYNTHROID [Concomitant]
     Active Substance: LEVOTHYROXINE SODIUM
     Indication: HYPOTHYROIDISM

REACTIONS (5)
  - Contusion [Not Recovered/Not Resolved]
  - Abdominal pain upper [Not Recovered/Not Resolved]
  - Hypoaesthesia [Unknown]
  - Paraesthesia [Unknown]
  - Hot flush [Unknown]

NARRATIVE: CASE EVENT DATE: 20150118
